FAERS Safety Report 12958063 (Version 1)
Quarter: 2016Q4

REPORT INFORMATION
  Report Type: Spontaneous
  Country: US (occurrence: US)
  Receive Date: 20161120
  Receipt Date: 20161120
  Transmission Date: 20170207
  Serious: No
  Sender: FDA-Public Use
  Company Number: US-ASTRAZENECA-2016SF18371

PATIENT
  Age: 680 Month
  Sex: Female
  Weight: 58.1 kg

DRUGS (14)
  1. ZOLPIDEM [Concomitant]
     Active Substance: ZOLPIDEM\ZOLPIDEM TARTRATE
     Indication: SLEEP DISORDER
     Route: 048
     Dates: start: 2013
  2. FISH OIL [Concomitant]
     Active Substance: FISH OIL
     Indication: ILL-DEFINED DISORDER
     Dates: start: 2011
  3. CETIRIZINE OTC [Concomitant]
     Route: 048
  4. RESTASIS [Concomitant]
     Active Substance: CYCLOSPORINE
     Indication: DRY EYE
     Route: 047
  5. PREDNISONE. [Concomitant]
     Active Substance: PREDNISONE
     Indication: RADIATION PNEUMONITIS
     Route: 048
     Dates: start: 20160803
  6. ALREX OPTHALMIC [Concomitant]
     Indication: EYE INFLAMMATION
     Route: 047
     Dates: start: 201605
  7. ADVAIR HFA [Concomitant]
     Active Substance: FLUTICASONE PROPIONATE\SALMETEROL XINAFOATE
     Indication: ASTHMA
     Dosage: 250/50MG 1 PUFF TWO TIMES A DAY
     Route: 055
     Dates: start: 2008
  8. TAGRISSO [Suspect]
     Active Substance: OSIMERTINIB
     Indication: NON-SMALL CELL LUNG CANCER
     Route: 048
     Dates: start: 201512
  9. SINGULAIR [Concomitant]
     Active Substance: MONTELUKAST SODIUM
     Indication: ASTHMA
     Route: 048
     Dates: start: 2005
  10. PROBIOTIC [Concomitant]
     Active Substance: PROBIOTICS NOS
     Indication: GASTROINTESTINAL PAIN
     Dosage: 1 TABLET DAILY
     Route: 048
     Dates: start: 2014
  11. CALCIUM [Concomitant]
     Active Substance: CALCIUM
     Indication: OSTEOPENIA
     Route: 048
     Dates: start: 2013
  12. STEROID [Concomitant]
     Active Substance: UNSPECIFIED INGREDIENT
     Dates: start: 201608
  13. MULTIPLE VITAMIN [Concomitant]
     Active Substance: VITAMINS
     Indication: VITAMIN SUPPLEMENTATION
     Dosage: 1 TABLET DAILY
     Route: 048
  14. OXYCODONE [Concomitant]
     Active Substance: OXYCODONE
     Indication: PAIN
     Dosage: 5.0MG UNKNOWN
     Route: 048
     Dates: start: 201507

REACTIONS (8)
  - Eye inflammation [Unknown]
  - Dyspnoea [Unknown]
  - Eye irritation [Unknown]
  - Dacryostenosis acquired [Unknown]
  - Radiation pneumonitis [Unknown]
  - Hepatic enzyme increased [Unknown]
  - Fatigue [Unknown]
  - Cataract [Unknown]

NARRATIVE: CASE EVENT DATE: 201605
